FAERS Safety Report 5282929-8 (Version None)
Quarter: 2007Q2

REPORT INFORMATION
  Report Type: 
  Country: None (occurrence: None)
  Receive Date: 20070402
  Receipt Date: 20070326
  Transmission Date: 20071010
  Serious: Yes (Death, Other)
  Sender: FDA-Public Use
  Company Number: PHFR2007IE00950

PATIENT
  Age: 38 Year
  Sex: Male

DRUGS (2)
  1. CLOZARIL [Suspect]
     Indication: SCHIZOPHRENIA
     Dosage: 200 MG, TID
     Route: 048
     Dates: start: 20031021
  2. PAROXETINE HCL [Concomitant]
     Dosage: 20 MG, TID
     Route: 048
     Dates: start: 20030601

REACTIONS (4)
  - CARDIAC DISORDER [None]
  - FATIGUE [None]
  - MYOCARDITIS [None]
  - WEIGHT INCREASED [None]
